FAERS Safety Report 12535994 (Version 6)
Quarter: 2016Q4

REPORT INFORMATION
  Report Type: Other
  Country: US (occurrence: US)
  Receive Date: 20160707
  Receipt Date: 20161110
  Transmission Date: 20170207
  Serious: Yes (Death, Other)
  Sender: FDA-Public Use
  Company Number: US-ACORDA-ACO_125796_2016

PATIENT
  Age: 69 Year
  Sex: Male

DRUGS (8)
  1. LASIX [Concomitant]
     Active Substance: FUROSEMIDE
     Indication: PRODUCT USED FOR UNKNOWN INDICATION
  2. LOSARTAN. [Concomitant]
     Active Substance: LOSARTAN
     Indication: PRODUCT USED FOR UNKNOWN INDICATION
  3. AMPYRA [Suspect]
     Active Substance: DALFAMPRIDINE
     Indication: RELAPSING-REMITTING MULTIPLE SCLEROSIS
     Dosage: 10 MG, Q 12 HRS
     Route: 065
     Dates: start: 201004, end: 201110
  4. ATORVASTATIN [Concomitant]
     Active Substance: ATORVASTATIN
     Indication: PRODUCT USED FOR UNKNOWN INDICATION
  5. METFORMIN [Concomitant]
     Active Substance: METFORMIN HYDROCHLORIDE
     Indication: PRODUCT USED FOR UNKNOWN INDICATION
  6. AMPYRA [Suspect]
     Active Substance: DALFAMPRIDINE
     Dosage: 10 UNK, Q 12 HRS
     Route: 065
     Dates: start: 201506
  7. AMLODIPINE [Concomitant]
     Active Substance: AMLODIPINE BESYLATE
     Indication: PRODUCT USED FOR UNKNOWN INDICATION
  8. PLAVIX [Concomitant]
     Active Substance: CLOPIDOGREL BISULFATE
     Indication: PRODUCT USED FOR UNKNOWN INDICATION

REACTIONS (3)
  - Cardiac arrest [Fatal]
  - Ischaemic cardiomyopathy [Unknown]
  - Cardiac failure [Fatal]

NARRATIVE: CASE EVENT DATE: 201505
